FAERS Safety Report 5587185-9 (Version None)
Quarter: 2008Q1

REPORT INFORMATION
  Report Type: 
  Country: None (occurrence: None)
  Receive Date: 20080110
  Receipt Date: 20080110
  Transmission Date: 20080703
  Serious: Yes (Death, Hospitalization)
  Sender: FDA-Public Use
  Company Number: PHHO1999FR09465

PATIENT
  Age: 73 Year
  Sex: Male
  Weight: 65 kg

DRUGS (6)
  1. IGE025 OR PLACEBO [Suspect]
     Indication: ASTHMA
     Dosage: SCREENING PHASE
     Dates: start: 19990510
  2. CORTANCYL [Suspect]
     Indication: ASTHMA
     Dosage: 10
     Route: 048
     Dates: start: 19990101
  3. DILATRANE [Concomitant]
     Indication: ASTHMA
     Dosage: 300
     Route: 048
  4. BEROTEC [Concomitant]
     Indication: ASTHMA
     Dosage: 200
  5. FORADIL [Concomitant]
     Indication: ASTHMA
     Dosage: 12
     Dates: start: 19960101
  6. FLIXOTIDE [Concomitant]
     Indication: ASTHMA
     Dosage: 1000
     Dates: start: 19971201

REACTIONS (1)
  - ACUTE RESPIRATORY DISTRESS SYNDROME [None]
